FAERS Safety Report 5624575-X (Version None)
Quarter: 2008Q1

REPORT INFORMATION
  Report Type: 
  Country: None (occurrence: None)
  Receive Date: 20080208
  Receipt Date: 20080208
  Transmission Date: 20080703
  Serious: Yes (Hospitalization)
  Sender: FDA-Public Use
  Company Number: None

PATIENT
  Sex: Female
  Weight: 4.84 kg

DRUGS (2)
  1. CAMPTOSAR [Suspect]
     Dosage: 36.7 MG
  2. VINCRISTINE SULFATE [Suspect]
     Dosage: .25 MG

REACTIONS (15)
  - APNOEA [None]
  - BLOOD CULTURE POSITIVE [None]
  - BLOOD DISORDER [None]
  - BRADYCARDIA [None]
  - CAECITIS [None]
  - ENTEROBACTER INFECTION [None]
  - HEPATOMEGALY [None]
  - HYPOVENTILATION [None]
  - MALIGNANT NEOPLASM PROGRESSION [None]
  - OEDEMA [None]
  - RESPIRATORY FAILURE [None]
  - STAPHYLOCOCCAL INFECTION [None]
  - STENOTROPHOMONAS INFECTION [None]
  - TRACHEITIS [None]
  - TRACHEOSTOMY INFECTION [None]
